FAERS Safety Report 10188520 (Version 1)
Quarter: 2014Q2

REPORT INFORMATION
  Report Type: Spontaneous
  Country: US (occurrence: None)
  Receive Date: 20140521
  Receipt Date: 20140521
  Transmission Date: 20141212
  Serious: Yes (Hospitalization)
  Sender: FDA-Public Use
  Company Number: None

PATIENT
  Age: 72 Year
  Sex: Male
  Weight: 83.2 kg

DRUGS (2)
  1. MIDAZOLAM [Suspect]
     Indication: SURGERY
     Route: 042
     Dates: start: 20130618, end: 20130618
  2. FENTANYL [Suspect]
     Indication: SURGERY
     Dosage: 50 MCG  PRN  IV
     Route: 042
     Dates: start: 20130618, end: 20130618

REACTIONS (5)
  - Oxygen saturation decreased [None]
  - Rash [None]
  - Wheezing [None]
  - Hypertension [None]
  - Dyspnoea [None]
